FAERS Safety Report 4547052-6 (Version None)
Quarter: 2005Q1

REPORT INFORMATION
  Report Type: 
  Country: None (occurrence: None)
  Receive Date: 20050107
  Receipt Date: 20050104
  Transmission Date: 20050727
  Serious: Yes (Death, Other)
  Sender: FDA-Public Use
  Company Number: PHFR2005GB00442

PATIENT
  Age: 35 Year
  Sex: Male

DRUGS (3)
  1. CLOZAPINE [Suspect]
     Indication: SCHIZOPHRENIA
     Dosage: 600 MG/DAY
     Route: 048
     Dates: start: 19960101, end: 20040304
  2. PROCYCLIDINE HYDROCHLORIDE 2MG TAB [Concomitant]
     Route: 048
     Dates: end: 20040308
  3. EPILIM [Concomitant]
     Dosage: 500 MG/DAY
     Route: 048
     Dates: end: 20040308

REACTIONS (10)
  - AMNESIA [None]
  - DECREASED INTEREST [None]
  - DISORIENTATION [None]
  - DISTURBANCE IN ATTENTION [None]
  - DRUG TOXICITY [None]
  - EATING DISORDER [None]
  - INCONTINENCE [None]
  - RESPIRATORY DISORDER [None]
  - SOMNOLENCE [None]
  - WEIGHT INCREASED [None]
